FAERS Safety Report 11010878 (Version 2)
Quarter: 2015Q2

REPORT INFORMATION
  Report Type: Spontaneous
  Country: US (occurrence: US)
  Receive Date: 20150410
  Receipt Date: 20150527
  Transmission Date: 20150821
  Serious: Yes (Other)
  Sender: FDA-Public Use
  Company Number: US-PFIZER INC-2015123944

PATIENT
  Age: 58 Year
  Sex: Female
  Weight: 68 kg

DRUGS (9)
  1. LYRICA [Suspect]
     Active Substance: PREGABALIN
     Indication: NEUROPATHY PERIPHERAL
     Dosage: 75 MG, 3X/DAY
     Dates: start: 201407
  2. DICLOFENAC [Concomitant]
     Active Substance: DICLOFENAC
     Indication: CARPAL TUNNEL SYNDROME
  3. VITAMIN B12 [Concomitant]
     Active Substance: CYANOCOBALAMIN
     Dosage: UNK
  4. ATORVASTATIN [Concomitant]
     Active Substance: ATORVASTATIN
     Indication: BLOOD CHOLESTEROL INCREASED
     Dosage: 40 MG, 1X/DAY
  5. DICLOFENAC [Concomitant]
     Active Substance: DICLOFENAC
     Indication: TARSAL TUNNEL SYNDROME
  6. DICLOFENAC [Concomitant]
     Active Substance: DICLOFENAC
     Indication: CARPAL TUNNEL SYNDROME
     Dosage: 75 MG, 2X/DAY
  7. MELATONIN [Concomitant]
     Active Substance: MELATONIN
     Dosage: 5 MG, 1X/DAY
  8. SINEMET [Concomitant]
     Active Substance: CARBIDOPA\LEVODOPA
     Dosage: 25/100 2 TABLETS IN MORNING, AT BEDTIME, 1 1/2 TABLETS AT LUNCH, AFTERNOON AND EVENING
  9. VITAMIN D [Concomitant]
     Active Substance: CHOLECALCIFEROL
     Dosage: 1000 IU, 1X/DAY

REACTIONS (2)
  - Parkinson^s disease [Unknown]
  - Subclavian steal syndrome [Not Recovered/Not Resolved]

NARRATIVE: CASE EVENT DATE: 20150318
